FAERS Safety Report 11168170 (Version 1)
Quarter: 2015Q2

REPORT INFORMATION
  Report Type: Spontaneous
  Country: US (occurrence: None)
  Receive Date: 20150604
  Receipt Date: 20150604
  Transmission Date: 20150821
  Serious: Yes (Other)
  Sender: FDA-Public Use
  Company Number: None

PATIENT
  Age: 80 Year
  Sex: Male
  Weight: 82.56 kg

DRUGS (8)
  1. AMLODIPINEACCUPRIL [Concomitant]
  2. VIAGRA [Concomitant]
     Active Substance: SILDENAFIL CITRATE
  3. MULTIVITAMIN [Concomitant]
     Active Substance: VITAMINS
  4. METFORMIN [Concomitant]
     Active Substance: METFORMIN HYDROCHLORIDE
  5. GLIPIZIDE. [Concomitant]
     Active Substance: GLIPIZIDE
  6. BIOTENE (PASTE) [Suspect]
     Active Substance: SODIUM MONOFLUOROPHOSPHATE
     Indication: DRY MOUTH
     Dates: start: 20150310, end: 20150321
  7. VITAMIN B12 [Concomitant]
     Active Substance: CYANOCOBALAMIN
  8. BIOTENE (PASTE) [Suspect]
     Active Substance: SODIUM MONOFLUOROPHOSPHATE
     Indication: MIDDLE INSOMNIA
     Dates: start: 20150310, end: 20150321

REACTIONS (2)
  - Dysgeusia [None]
  - Glossodynia [None]

NARRATIVE: CASE EVENT DATE: 20150310
